FAERS Safety Report 23028511 (Version 2)
Quarter: 2023Q4

REPORT INFORMATION
  Report Type: Report from Study
  Country: JP (occurrence: None)
  Receive Date: 20231004
  Receipt Date: 20231013
  Transmission Date: 20240110
  Serious: Yes (Other)
  Sender: FDA-Public Use
  Company Number: 2023A221558

PATIENT
  Age: 75 Year
  Sex: Female

DRUGS (4)
  1. EVUSHELD [Suspect]
     Active Substance: CILGAVIMAB\TIXAGEVIMAB
     Indication: COVID-19 prophylaxis
     Dosage: DOSE UNKNOWN
     Route: 030
  2. POLATUZUMAB VEDOTIN(GENETICAL RECOMBINATION) [Concomitant]
     Indication: Diffuse large B-cell lymphoma
     Dosage: DOSE UNKNOWN
     Route: 065
  3. BENDAMUSTINE HYDROCHLORIDE [Concomitant]
     Active Substance: BENDAMUSTINE HYDROCHLORIDE
     Indication: Diffuse large B-cell lymphoma
     Dosage: DOSE UNKNOWN
     Route: 065
  4. RITUXIMAB [Concomitant]
     Active Substance: RITUXIMAB
     Indication: Diffuse large B-cell lymphoma
     Dosage: DOSE UNKNOWN
     Route: 065

REACTIONS (1)
  - COVID-19 [Unknown]
